FAERS Safety Report 5068862-5 (Version None)
Quarter: 2006Q3

REPORT INFORMATION
  Report Type: 
  Country: None (occurrence: None)
  Receive Date: 20060802
  Receipt Date: 20060508
  Transmission Date: 20061208
  Serious: No
  Sender: FDA-Public Use
  Company Number: US-BRISTOL-MYERS SQUIBB COMPANY-13371182

PATIENT
  Age: 67 Year
  Sex: Male
  Weight: 108 kg

DRUGS (10)
  1. COUMADIN [Suspect]
     Indication: ATRIAL FIBRILLATION
     Dosage: PATIENT WAS TITRATED ON COUMADIN AND CURRENTLY WAS TAKING 55 MG PER WEEK
     Dates: start: 20060323
  2. COUMADIN [Suspect]
     Indication: ATRIAL FIBRILLATION
     Dosage: PATIENT WAS TITRATED ON COUMADIN AND CURRENTLY WAS TAKING 55 MG PER WEEK
     Dates: start: 20060501
  3. GLIPIZIDE [Concomitant]
  4. NIACIN [Concomitant]
  5. FOSINOPRIL SODIUM [Concomitant]
  6. SIMVASTATIN [Concomitant]
  7. METOPROLOL [Concomitant]
  8. AMIODARONE HCL [Concomitant]
  9. ROSIGLITAZONE [Concomitant]
  10. LORAZEPAM [Concomitant]

REACTIONS (1)
  - RASH PRURITIC [None]
